FAERS Safety Report 21941207 (Version 1)
Quarter: 2023Q1

REPORT INFORMATION
  Report Type: Report from Study
  Country: US (occurrence: US)
  Receive Date: 20230202
  Receipt Date: 20230202
  Transmission Date: 20230418
  Serious: No
  Sender: FDA-Public Use
  Company Number: US-EXELIXIS-CABO-22054036

PATIENT
  Age: 74 Year
  Sex: Male

DRUGS (2)
  1. CABOMETYX [Suspect]
     Active Substance: CABOZANTINIB S-MALATE
     Indication: Product used for unknown indication
     Dosage: 60 MG, QD
     Route: 048
     Dates: start: 202206
  2. CABOMETYX [Suspect]
     Active Substance: CABOZANTINIB S-MALATE
     Dosage: 40 MG, QD
     Route: 048

REACTIONS (15)
  - Balance disorder [Recovered/Resolved]
  - Tremor [Unknown]
  - Gingival discomfort [Recovered/Resolved]
  - Anosmia [Recovered/Resolved]
  - Throat irritation [Recovered/Resolved]
  - Ageusia [Recovered/Resolved]
  - Swollen tongue [Recovered/Resolved]
  - Glossodynia [Unknown]
  - Oral pain [Recovered/Resolved]
  - Stomatitis [Unknown]
  - Fatigue [Recovered/Resolved]
  - Rash [Recovered/Resolved]
  - Hypertension [Recovered/Resolved]
  - Diarrhoea [Recovered/Resolved]
  - Weight decreased [Recovered/Resolved]

NARRATIVE: CASE EVENT DATE: 20220705
